FAERS Safety Report 23467342 (Version 17)
Quarter: 2024Q4

REPORT INFORMATION
  Report Type: Spontaneous
  Country: US (occurrence: US)
  Receive Date: 20240201
  Receipt Date: 20241112
  Transmission Date: 20250115
  Serious: Yes (Life-Threatening, Hospitalization, Other)
  Sender: PFIZER
  Company Number: US-PFIZER INC-202400029482

PATIENT
  Age: 47 Year
  Sex: Female
  Weight: 54.43 kg

DRUGS (2)
  1. DEPO-PROVERA [Suspect]
     Active Substance: MEDROXYPROGESTERONE ACETATE
     Indication: Contraception
     Dosage: INJECTION EVERY THREE MONTHS FOR 20 YEARS
     Dates: start: 2004, end: 20240124
  2. DEPO-PROVERA [Suspect]
     Active Substance: MEDROXYPROGESTERONE ACETATE
     Indication: Anaemia

REACTIONS (13)
  - Hepatic adenoma [Not Recovered/Not Resolved]
  - Hepatic pain [Unknown]
  - Osteoporosis [Unknown]
  - Hepatic neoplasm [Not Recovered/Not Resolved]
  - Haemorrhage [Unknown]
  - Bone loss [Unknown]
  - Lymphoma [Unknown]
  - Hysterectomy [Unknown]
  - Illness [Unknown]
  - Heavy menstrual bleeding [Unknown]
  - Feeling abnormal [Unknown]
  - Cholelithiasis [Unknown]
  - Osteoarthritis [Unknown]

NARRATIVE: CASE EVENT DATE: 20240326
